FAERS Safety Report 16056385 (Version 3)
Quarter: 2020Q4

REPORT INFORMATION
  Report Type: Other
  Country: BG (occurrence: BG)
  Receive Date: 20190311
  Receipt Date: 20201129
  Transmission Date: 20210113
  Serious: Yes (Hospitalization)
  Sender: FDA-Public Use
  Company Number: BG-ROCHE-2272734

PATIENT
  Age: 60 Year
  Sex: Female
  Weight: 72 kg

DRUGS (8)
  1. AMLODIPINE [Concomitant]
     Active Substance: AMLODIPINE BESYLATE
     Dosage: ONGOING = CHECKED
  2. TRASTUZUMAB. [Suspect]
     Active Substance: TRASTUZUMAB
     Indication: HER2 POSITIVE BREAST CANCER
     Dosage: MOST RECENT DOSE PRIOR TO THE EVENT ON 14/NOV/2018
     Route: 042
     Dates: start: 20181024
  3. DOCETAXEL. [Suspect]
     Active Substance: DOCETAXEL
     Indication: HER2 POSITIVE BREAST CANCER
     Dosage: ON 19/JAN/2019, RECEIVED MOST RECENT DOSE OF DOCETAXEL
     Route: 042
     Dates: start: 20181024
  4. L-THYROXIN [Concomitant]
     Active Substance: LEVOTHYROXINE SODIUM
     Dosage: ONGOING = CHECKED
  5. PERTUZUMAB. [Suspect]
     Active Substance: PERTUZUMAB
     Indication: HER2 POSITIVE BREAST CANCER
     Dosage: MOST RECENT DOSE PRIOR TO THE EVENT ON 14/NOV/2018
     Route: 042
     Dates: start: 20181024
  6. RAMIPRIL. [Concomitant]
     Active Substance: RAMIPRIL
     Dosage: ONGOING = CHECKED
  7. ZOLEDRONIC ACID [Suspect]
     Active Substance: ZOLEDRONIC ACID
     Indication: HER2 POSITIVE BREAST CANCER
     Dosage: ON 28/DEC/2018, RECEIVED MOST RECENT DOSE ZOLEDRONIC ACID.
     Route: 042
     Dates: start: 20181002
  8. BETALOC [Concomitant]
     Active Substance: METOPROLOL

REACTIONS (1)
  - Apical granuloma [Recovered/Resolved]

NARRATIVE: CASE EVENT DATE: 20190208
